FAERS Safety Report 22079802 (Version 2)
Quarter: 2023Q1

REPORT INFORMATION
  Report Type: Spontaneous
  Country: US (occurrence: US)
  Receive Date: 20230309
  Receipt Date: 20230314
  Transmission Date: 20230418
  Serious: No
  Sender: FDA-Public Use
  Company Number: US-PFIZER INC-2021383235

PATIENT
  Age: 74 Year
  Sex: Female

DRUGS (2)
  1. RETACRIT [Suspect]
     Active Substance: EPOETIN ALFA-EPBX
     Dosage: 1 ML, CYCLIC [10,000 UNITS; EVERY 14 DAYS]
     Dates: start: 20211216
  2. RETACRIT [Suspect]
     Active Substance: EPOETIN ALFA-EPBX
     Dosage: 4000 IU

REACTIONS (2)
  - Full blood count decreased [Unknown]
  - Off label use [Unknown]
